FAERS Safety Report 6892160-8 (Version None)
Quarter: 2010Q3

REPORT INFORMATION
  Report Type: 
  Country: None (occurrence: None)
  Receive Date: 20100731
  Receipt Date: 20080211
  Transmission Date: 20110219
  Serious: No
  Sender: FDA-Public Use
  Company Number: US-PFIZER INC-2008013141

PATIENT
  Sex: Male
  Weight: 86 kg

DRUGS (9)
  1. AMLODIPINE [Suspect]
     Indication: HYPERTENSION
     Dosage: FREQUENCY: DAILY
     Route: 048
  2. ANDROGEL [Suspect]
     Indication: BLOOD TESTOSTERONE DECREASED
     Dosage: FREQUENCY:QD
     Route: 062
     Dates: start: 20040101
  3. ANDROGEL [Suspect]
     Dosage: FREQUENCY:QD
  4. ANDROGEL [Suspect]
     Dosage: FREQUENCY:QD
     Dates: end: 20070701
  5. ANDROGEL [Suspect]
     Dosage: ON ALTERNATE DAYS WITH ANDRODERM,FREQUENCY: DAILY
     Dates: start: 20070701
  6. LOTREL [Suspect]
     Indication: HYPERTENSION
     Dosage: FREQUENCY: DAILY
     Route: 048
  7. ENALAPRIL [Suspect]
     Indication: HYPERTENSION
     Dosage: FREQUENCY: DAILY
     Route: 048
  8. TESTOSTERONE [Suspect]
     Dosage: FREQUENCY: DAILY
  9. CHOLESTEROL- AND TRIGLYCERIDE REDUCERS [Suspect]
     Indication: BLOOD CHOLESTEROL INCREASED
     Dosage: FREQUENCY: DAILY
     Route: 048

REACTIONS (6)
  - ALOPECIA [None]
  - BLOOD PRESSURE INCREASED [None]
  - BLOOD TESTOSTERONE DECREASED [None]
  - FEELING HOT [None]
  - LIVER FUNCTION TEST ABNORMAL [None]
  - PHOTOSENSITIVITY REACTION [None]
